FAERS Safety Report 9722174 (Version 1)
Quarter: 2013Q4

REPORT INFORMATION
  Report Type: Spontaneous
  Country: US (occurrence: US)
  Receive Date: 20131202
  Receipt Date: 20131202
  Transmission Date: 20140711
  Serious: Yes (Death)
  Sender: FDA-Public Use
  Company Number: US-INDICUS PHARMA-000195

PATIENT
  Sex: Female

DRUGS (11)
  1. METFORMIN HYDROCHLORIDE [Suspect]
     Route: 048
  2. VITAMIN D [Suspect]
     Route: 048
  3. CYCLOBENZAPRINE [Suspect]
     Route: 048
  4. AMOXICILLIN [Suspect]
     Route: 048
  5. METOPROLOL [Suspect]
     Route: 048
  6. NICARDIPINE [Suspect]
     Route: 048
  7. INSULIN [Suspect]
  8. HYDROCHLOROTHIAZIDE [Suspect]
     Route: 048
  9. HYDROCODONE/ACETAMINOPHEN [Suspect]
     Route: 048
  10. CLONIDINE [Suspect]
     Route: 048
  11. LISINOPRIL [Suspect]
     Route: 048

REACTIONS (3)
  - Exposure via ingestion [Fatal]
  - Completed suicide [Fatal]
  - Cardio-respiratory arrest [Fatal]
